FAERS Safety Report 6395182-9 (Version None)
Quarter: 2009Q4

REPORT INFORMATION
  Report Type: 
  Country: None (occurrence: None)
  Receive Date: 20091009
  Receipt Date: 20091006
  Transmission Date: 20100525
  Serious: Yes (Life-Threatening, Hospitalization)
  Sender: FDA-Public Use
  Company Number: PHHY2009HU43182

PATIENT
  Sex: Female

DRUGS (5)
  1. LESCOL XL [Suspect]
     Indication: HYPERLIPIDAEMIA
     Dosage: 80 MG/ DAY
     Route: 048
     Dates: start: 20060101, end: 20090822
  2. RIVOTRIL [Concomitant]
     Dosage: 0.5-0.5-1 MG/ DAY
     Dates: start: 20060101
  3. EDNYT [Concomitant]
     Dosage: 20 MG, BID
     Dates: start: 20060101
  4. AMLODIPINE [Concomitant]
     Dosage: 2 MG, 5QD
     Dates: start: 20060101
  5. PAROXETINE [Concomitant]
     Dosage: 20 MG QD
     Dates: start: 20060101

REACTIONS (6)
  - ANAEMIA [None]
  - DIALYSIS [None]
  - HEPATIC FAILURE [None]
  - JAUNDICE [None]
  - PNEUMONIA [None]
  - RENAL FAILURE [None]
